FAERS Safety Report 5065478-1 (Version None)
Quarter: 2006Q3

REPORT INFORMATION
  Report Type: 
  Country: None (occurrence: None)
  Receive Date: 20060725
  Receipt Date: 20060710
  Transmission Date: 20061208
  Serious: Yes (Hospitalization)
  Sender: FDA-Public Use
  Company Number: 227325

PATIENT
  Sex: Female

DRUGS (5)
  1. HERCEPTIN [Suspect]
     Indication: BREAST CANCER
     Dates: start: 20040301
  2. RADIATION (RADIATION THERAPY) [Concomitant]
  3. ADR (DOXORUBICIN/DOXORUBICIN HYDROCHLORIDE) [Concomitant]
  4. CTX (CYCLOPHOSPHAMIDE) [Concomitant]
  5. TAXOL [Concomitant]

REACTIONS (5)
  - BRONCHITIS [None]
  - CEREBROVASCULAR ACCIDENT [None]
  - HAEMOPTYSIS [None]
  - HEADACHE [None]
  - VISUAL DISTURBANCE [None]
